FAERS Safety Report 4615163-2 (Version None)
Quarter: 2005Q1

REPORT INFORMATION
  Report Type: 
  Country: None (occurrence: None)
  Receive Date: 20050322
  Receipt Date: 20050228
  Transmission Date: 20050727
  Serious: Yes (Other)
  Sender: FDA-Public Use
  Company Number: GB-GLAXOSMITHKLINE-B0373447A

PATIENT
  Age: 42 Year
  Sex: Female

DRUGS (3)
  1. FLOLAN [Suspect]
     Indication: BLOOD VISCOSITY INCREASED
     Route: 042
     Dates: start: 20041101
  2. AMLODIPINE [Concomitant]
     Route: 048
  3. ASPIRIN [Concomitant]
     Route: 048

REACTIONS (2)
  - PSORIASIS [None]
  - RASH [None]
